FAERS Safety Report 16788144 (Version 1)
Quarter: 2019Q3

REPORT INFORMATION
  Report Type: Spontaneous
  Country: ES (occurrence: ES)
  Receive Date: 20190909
  Receipt Date: 20190909
  Transmission Date: 20191005
  Serious: Yes (Hospitalization, Other)
  Sender: FDA-Public Use
  Company Number: ES-AUROBINDO-AUR-APL-2019-058076

PATIENT

DRUGS (2)
  1. METFORMIN [Suspect]
     Active Substance: METFORMIN HYDROCHLORIDE
     Indication: TYPE 2 DIABETES MELLITUS
     Dosage: UNK
     Route: 065
  2. EMPAGLIFLOZIN [Suspect]
     Active Substance: EMPAGLIFLOZIN
     Indication: TYPE 2 DIABETES MELLITUS
     Dosage: UNK
     Route: 065

REACTIONS (12)
  - Hypokalaemia [Recovered/Resolved]
  - Acute kidney injury [Unknown]
  - Vomiting [Unknown]
  - Leukocytosis [Unknown]
  - Hyperglycaemia [Recovered/Resolved]
  - Metabolic acidosis [Unknown]
  - Nausea [Unknown]
  - Diabetic ketoacidosis [Unknown]
  - Abdominal pain [Unknown]
  - Dyspnoea [Recovered/Resolved]
  - Neutrophilia [Unknown]
  - Mental status changes [Unknown]
